FAERS Safety Report 14978540 (Version 2)
Quarter: 2018Q3

REPORT INFORMATION
  Report Type: Spontaneous
  Country: IT (occurrence: IT)
  Receive Date: 20180606
  Receipt Date: 20180810
  Transmission Date: 20181010
  Serious: Yes (Other)
  Sender: FDA-Public Use
  Company Number: IT-AUROBINDO-AUR-APL-2018-028679

PATIENT
  Age: 65 Year
  Sex: Female

DRUGS (1)
  1. CIPROFLOXACIN. [Suspect]
     Active Substance: CIPROFLOXACIN
     Indication: CYSTITIS
     Dosage: 500 MILLIGRAM, TOTAL
     Route: 048
     Dates: start: 20180503

REACTIONS (3)
  - Hypersensitivity [Recovering/Resolving]
  - Eyelid oedema [Recovering/Resolving]
  - Pruritus generalised [Recovering/Resolving]

NARRATIVE: CASE EVENT DATE: 20180503
